FAERS Safety Report 9722838 (Version 1)
Quarter: 2013Q4

REPORT INFORMATION
  Report Type: Spontaneous
  Country: CA (occurrence: CA)
  Receive Date: 20131202
  Receipt Date: 20131202
  Transmission Date: 20140711
  Serious: Yes (Hospitalization)
  Sender: FDA-Public Use
  Company Number: CA-AMGEN-CANSP2013084508

PATIENT
  Age: 73 Year
  Sex: Female
  Weight: 50 kg

DRUGS (3)
  1. NEUPOGEN [Suspect]
     Indication: PRODUCT USED FOR UNKNOWN INDICATION
     Dosage: 300 MUG, 1 EVERY 1 DAY(S) FOR 5 DAYS
     Route: 058
  2. CALTRATE                           /00944201/ [Concomitant]
     Dosage: UNK
  3. FOSAVANCE [Concomitant]
     Dosage: UNK

REACTIONS (1)
  - Febrile neutropenia [Unknown]
